FAERS Safety Report 15567183 (Version 1)
Quarter: 2018Q4

REPORT INFORMATION
  Report Type: Spontaneous
  Country: US (occurrence: US)
  Receive Date: 20181030
  Receipt Date: 20181030
  Transmission Date: 20190205
  Serious: No
  Sender: FDA-Public Use
  Company Number: US-BAYER-2018-195428

PATIENT
  Sex: Female
  Weight: 63.5 kg

DRUGS (2)
  1. ALEVE [Suspect]
     Active Substance: NAPROXEN SODIUM
     Indication: DIABETIC NEUROPATHY
     Dosage: 220 MG, BID
     Route: 048
     Dates: start: 20180930, end: 20181002
  2. LYRICA [Concomitant]
     Active Substance: PREGABALIN
     Indication: DIABETIC NEUROPATHY

REACTIONS (3)
  - Diabetic neuropathy [Not Recovered/Not Resolved]
  - Incorrect dosage administered [None]
  - Drug ineffective for unapproved indication [Not Recovered/Not Resolved]
